FAERS Safety Report 17243286 (Version 2)
Quarter: 2020Q1

REPORT INFORMATION
  Report Type: Spontaneous
  Country: NL (occurrence: NL)
  Receive Date: 20200107
  Receipt Date: 20200109
  Transmission Date: 20200409
  Serious: Yes (Hospitalization)
  Sender: FDA-Public Use
  Company Number: NL-PFIZER INC-2019526226

PATIENT
  Age: 72 Year
  Sex: Female
  Weight: 100 kg

DRUGS (12)
  1. PANTOPRAZOLE [Concomitant]
     Active Substance: PANTOPRAZOLE
     Dosage: 40 MG, 1X/DAY
     Route: 048
  2. SOMAVERT [Suspect]
     Active Substance: PEGVISOMANT
     Dosage: 30 MG, 1X/DAY
     Route: 058
     Dates: start: 20160727
  3. EPLERENONE. [Concomitant]
     Active Substance: EPLERENONE
     Dosage: 12.5 MG, 1X/DAY
     Route: 048
  4. LEVODOPA/CARBIDOPA [Concomitant]
     Active Substance: CARBIDOPA\LEVODOPA
     Dosage: 1 DF (50/12.5 MG), 3X/DAY
     Route: 048
  5. MORFINE [Concomitant]
     Active Substance: MORPHINE
     Dosage: UNK
  6. ACETIC ACID/TRIAMCINOLONE ACETONIDE [Concomitant]
     Dosage: 3 DF (7.2/1MG/G), 3X/DAY
     Route: 001
  7. INSULINE GLARGINE [Concomitant]
     Active Substance: INSULIN GLARGINE
     Dosage: UNK
  8. ATORVASTATIN [Concomitant]
     Active Substance: ATORVASTATIN
     Dosage: 20 MG, 1X/DAY
     Route: 048
  9. FUROSEMIDE. [Concomitant]
     Active Substance: FUROSEMIDE
     Dosage: 60 MG, 1X/DAY
     Route: 048
  10. SOMAVERT [Suspect]
     Active Substance: PEGVISOMANT
     Indication: ACROMEGALY
     Dosage: UNK
     Dates: start: 20150225
  11. DIGOXINE [Concomitant]
     Active Substance: DIGOXIN
     Dosage: 0.125 MG, 1X/DAY
     Route: 048
  12. METOPROLOL SUCCINATE. [Concomitant]
     Active Substance: METOPROLOL SUCCINATE
     Dosage: 100 MG, 1X/DAY
     Route: 048

REACTIONS (3)
  - Cholelithiasis [Recovering/Resolving]
  - Peritonitis [Recovering/Resolving]
  - Cholecystitis [Recovering/Resolving]
